FAERS Safety Report 5551124-7 (Version None)
Quarter: 2007Q4

REPORT INFORMATION
  Report Type: 
  Country: None (occurrence: None)
  Receive Date: 20071212
  Receipt Date: 20071204
  Transmission Date: 20080405
  Serious: Yes (Other)
  Sender: FDA-Public Use
  Company Number: B0498299A

PATIENT
  Age: 27 Year
  Sex: Female

DRUGS (2)
  1. LAMICTAL [Suspect]
     Indication: PETIT MAL EPILEPSY
     Route: 048
  2. HORMONE TREATMENT [Suspect]
     Indication: OVULATION INDUCTION
     Route: 065

REACTIONS (3)
  - DRUG INTERACTION [None]
  - PETIT MAL EPILEPSY [None]
  - PREGNANCY [None]
